FAERS Safety Report 7227380-6 (Version None)
Quarter: 2011Q1

REPORT INFORMATION
  Report Type: 
  Country: None (occurrence: None)
  Receive Date: 20110111
  Receipt Date: 20110111
  Transmission Date: 20110831
  Serious: Yes (Disabling, Other)
  Sender: FDA-Public Use
  Company Number: None

PATIENT
  Age: 67 Year
  Sex: Female
  Weight: 58.9676 kg

DRUGS (2)
  1. TOPIRAMATE [Suspect]
     Indication: PAIN
     Dosage: .25 X 2 2XDAY PO
     Route: 048
     Dates: start: 20100521, end: 20100924
  2. TOPIRAMATE [Suspect]
     Indication: HEADACHE
     Dosage: .25 X 2 2XDAY PO
     Route: 048
     Dates: start: 20100521, end: 20100924

REACTIONS (24)
  - DIZZINESS [None]
  - FATIGUE [None]
  - URINARY TRACT DISORDER [None]
  - DISTURBANCE IN ATTENTION [None]
  - CONFUSIONAL STATE [None]
  - BRADYPHRENIA [None]
  - MALAISE [None]
  - COORDINATION ABNORMAL [None]
  - URINARY INCONTINENCE [None]
  - SOMNOLENCE [None]
  - IMPAIRED DRIVING ABILITY [None]
  - PRURITUS [None]
  - VISUAL IMPAIRMENT [None]
  - SPEECH DISORDER [None]
  - THERAPY REGIMEN CHANGED [None]
  - GAIT DISTURBANCE [None]
  - FALL [None]
  - DECREASED ACTIVITY [None]
  - PAIN [None]
  - WEIGHT DECREASED [None]
  - HEADACHE [None]
  - CLUMSINESS [None]
  - MEMORY IMPAIRMENT [None]
  - BACK PAIN [None]
